FAERS Safety Report 9774645 (Version 3)
Quarter: 2014Q1

REPORT INFORMATION
  Report Type: Spontaneous
  Country: TW (occurrence: TW)
  Receive Date: 20131220
  Receipt Date: 20140306
  Transmission Date: 20141002
  Serious: Yes (Hospitalization)
  Sender: FDA-Public Use
  Company Number: TW-ASTELLAS-2013JP013628

PATIENT
  Age: 46 Year
  Sex: Female

DRUGS (2)
  1. ADVAGRAF [Suspect]
     Indication: RENAL TRANSPLANT
     Dosage: 7 MG, UNKNOWN/D
     Route: 048
     Dates: start: 201311, end: 2013
  2. ADVAGRAF [Suspect]
     Dosage: UNK
     Route: 048
     Dates: start: 2013, end: 2013

REACTIONS (2)
  - Pneumonia [Recovered/Resolved]
  - Pulmonary haemorrhage [Recovered/Resolved]
